FAERS Safety Report 21575269 (Version 1)
Quarter: 2022Q4

REPORT INFORMATION
  Report Type: Spontaneous
  Country: PT (occurrence: PT)
  Receive Date: 20221110
  Receipt Date: 20221110
  Transmission Date: 20230113
  Serious: Yes (Other)
  Sender: FDA-Public Use
  Company Number: PT-ETHYPHARM-2022002133

PATIENT
  Age: 27 Year
  Sex: Female

DRUGS (6)
  1. LIDOCAINE [Suspect]
     Active Substance: LIDOCAINE
     Indication: Epidural anaesthesia
     Dosage: 15 MILLILITER
     Route: 065
  2. ROPIVACAINE [Suspect]
     Active Substance: ROPIVACAINE
     Indication: Epidural anaesthesia
     Dosage: 8 MILLILITER
     Route: 037
  3. ROPIVACAINE [Suspect]
     Active Substance: ROPIVACAINE
     Dosage: 2 MILLILITER
     Route: 037
  4. ROPIVACAINE [Suspect]
     Active Substance: ROPIVACAINE
     Dosage: 10 MILLILITER
     Route: 037
  5. SUFENTANIL [Suspect]
     Active Substance: SUFENTANIL
     Indication: Epidural anaesthesia
     Dosage: 5 MICROGRAM
     Route: 065
  6. SUFENTANIL [Suspect]
     Active Substance: SUFENTANIL
     Dosage: 2.5 MICROGRAM
     Route: 065

REACTIONS (2)
  - Horner^s syndrome [Recovered/Resolved]
  - Exposure during pregnancy [Recovered/Resolved]
